FAERS Safety Report 8570496-2 (Version None)
Quarter: 2012Q3

REPORT INFORMATION
  Report Type: 
  Country: None (occurrence: None)
  Receive Date: 20120803
  Receipt Date: 20120723
  Transmission Date: 20120928
  Serious: No
  Sender: FDA-Public Use
  Company Number: US-ASTRAZENECA-2012SE25679

PATIENT
  Age: 62 Year
  Sex: Female

DRUGS (1)
  1. CRESTOR [Suspect]
     Route: 048

REACTIONS (6)
  - DIABETES MELLITUS [None]
  - CARDIAC DISORDER [None]
  - MALAISE [None]
  - HEARING IMPAIRED [None]
  - INTERVERTEBRAL DISC DISORDER [None]
  - MEMORY IMPAIRMENT [None]
